FAERS Safety Report 7830520-9 (Version None)
Quarter: 2011Q4

REPORT INFORMATION
  Report Type: 
  Country: None (occurrence: None)
  Receive Date: 20111021
  Receipt Date: 20111011
  Transmission Date: 20120403
  Serious: No
  Sender: FDA-Public Use
  Company Number: FR-NOVOPROD-337651

PATIENT

DRUGS (1)
  1. VICTOZA [Suspect]
     Indication: TYPE 2 DIABETES MELLITUS
     Dosage: 1.2 MG, QD
     Route: 058
     Dates: start: 20110308, end: 20110617

REACTIONS (3)
  - ABDOMINAL PAIN UPPER [None]
  - PANCREATITIS [None]
  - DYSPEPSIA [None]
